FAERS Safety Report 8590168 (Version 2)
Quarter: 2012Q4

REPORT INFORMATION
  Report Type: 
  Country: US (occurrence: US)
  Receive Date: 20120601
  Receipt Date: 20120914
  Transmission Date: 20130627
  Serious: Yes (Hospitalization)
  Sender: FDA-Public Use
  Company Number: US-BAYER-2012-053240

PATIENT
  Age: 24 Year
  Sex: Female
  Weight: 58.96 kg

DRUGS (7)
  1. YAZ [Suspect]
     Indication: PREMENSTRUAL SYNDROME
     Dosage: UNK
     Dates: start: 20080519, end: 200907
  2. YAZ [Suspect]
     Indication: PREMENSTRUAL SYNDROME
  3. NEXIUM [Concomitant]
     Indication: GASTROOESOPHAGEAL REFLUX DISEASE
  4. VERAPAMIL [Concomitant]
     Indication: HYPERTENSION
  5. AMLODIPINE [Concomitant]
     Dosage: UNK
     Dates: start: 20090406
  6. AMOX TR-K [Concomitant]
  7. PERCOCET [Concomitant]
     Dosage: UNK
     Dates: start: 20090429

REACTIONS (7)
  - Cholecystitis chronic [None]
  - Cholelithiasis [None]
  - Injury [None]
  - Pain [None]
  - Abdominal pain [None]
  - Back pain [None]
  - Nausea [None]
